FAERS Safety Report 9744342 (Version 1)
Quarter: 2013Q4

REPORT INFORMATION
  Report Type: Spontaneous
  Country: FR (occurrence: FR)
  Receive Date: 20131210
  Receipt Date: 20131210
  Transmission Date: 20140711
  Serious: Yes (Hospitalization, Other)
  Sender: FDA-Public Use
  Company Number: FR-UCBSA-104898

PATIENT
  Age: 28 Year
  Sex: Male

DRUGS (7)
  1. KEPPRA [Suspect]
     Indication: EPILEPSY
     Route: 048
     Dates: start: 201303
  2. KEPPRA [Suspect]
     Indication: EPILEPSY
     Dates: start: 2010
  3. ECSTASY (MDMA) [Concomitant]
  4. RIVOTRIL [Concomitant]
     Indication: EPILEPSY
     Dates: start: 2010
  5. SUBUTEX [Concomitant]
     Dates: end: 2010
  6. SUBUTEX [Concomitant]
  7. BENZODIAZEPINE [Concomitant]
     Indication: SCHIZOPHRENIA
     Dates: start: 2010

REACTIONS (2)
  - Drug abuse [Unknown]
  - Amnesia [Recovered/Resolved]
